FAERS Safety Report 24769235 (Version 2)
Quarter: 2025Q1

REPORT INFORMATION
  Report Type: Spontaneous
  Country: US (occurrence: US)
  Receive Date: 20241224
  Receipt Date: 20250110
  Transmission Date: 20250408
  Serious: No
  Sender: BECTON DICKINSON
  Company Number: US-BECTON DICKINSON-US-BD-24-000682

PATIENT
  Sex: Female

DRUGS (1)
  1. CHLORAPREP ONE-STEP FREPP [Suspect]
     Active Substance: CHLORHEXIDINE GLUCONATE\ISOPROPYL ALCOHOL
     Indication: Product used for unknown indication
     Route: 065

REACTIONS (3)
  - Skin injury [Recovering/Resolving]
  - Device malfunction [Recovering/Resolving]
  - Occupational exposure to product [Recovering/Resolving]

NARRATIVE: CASE EVENT DATE: 20241204
